FAERS Safety Report 9027905 (Version 3)
Quarter: 2013Q1

REPORT INFORMATION
  Report Type: Spontaneous
  Country: AT (occurrence: AT)
  Receive Date: 20130123
  Receipt Date: 20130125
  Transmission Date: 20140127
  Serious: Yes (Other)
  Sender: FDA-Public Use
  Company Number: AT-ASTRAZENECA-2013SE03777

PATIENT
  Age: 83 Year
  Sex: Female

DRUGS (2)
  1. NAROPIN [Suspect]
     Indication: EPIDURAL ANAESTHESIA
     Dosage: 0.2%, 8-10ML/H NAOPIN 2 MG/ML
     Route: 008
     Dates: start: 20121127
  2. XARELTO [Suspect]
     Indication: THROMBOSIS PROPHYLAXIS
     Route: 048
     Dates: start: 20121127

REACTIONS (2)
  - Neurological symptom [Not Recovered/Not Resolved]
  - Extradural haematoma [Unknown]
